FAERS Safety Report 4991544-2 (Version None)
Quarter: 2006Q2

REPORT INFORMATION
  Report Type: 
  Country: None (occurrence: None)
  Receive Date: 20060502
  Receipt Date: 20060417
  Transmission Date: 20061013
  Serious: Yes (Hospitalization)
  Sender: FDA-Public Use
  Company Number: 2006-BP-04302RO

PATIENT
  Age: 50 Year
  Sex: Female

DRUGS (3)
  1. AZATHIOPRINE [Suspect]
     Indication: RELAPSING-REMITTING MULTIPLE SCLEROSIS
     Dosage: 50 MG DAILY
     Dates: start: 20040201, end: 20040701
  2. INTERFERON BETA (INTERFERON BETA) [Concomitant]
  3. DEXAMETHASONE [Concomitant]

REACTIONS (7)
  - DIZZINESS [None]
  - DYSPNOEA [None]
  - EXERCISE TOLERANCE DECREASED [None]
  - FATIGUE [None]
  - PANCYTOPENIA [None]
  - SERUM FERRITIN INCREASED [None]
  - TREATMENT NONCOMPLIANCE [None]
